FAERS Safety Report 8347103-7 (Version None)
Quarter: 2012Q2

REPORT INFORMATION
  Report Type: 
  Country: None (occurrence: None)
  Receive Date: 20120509
  Receipt Date: 20120501
  Transmission Date: 20120825
  Serious: Yes (Hospitalization)
  Sender: FDA-Public Use
  Company Number: US-JNJFOC-20120502181

PATIENT

DRUGS (1)
  1. RISPERDAL CONSTA [Suspect]
     Indication: BIPOLAR I DISORDER
     Route: 030

REACTIONS (1)
  - HOSPITALISATION [None]
